FAERS Safety Report 5144368-X (Version None)
Quarter: 2006Q4

REPORT INFORMATION
  Report Type: 
  Country: None (occurrence: None)
  Receive Date: 20061030
  Receipt Date: 20061019
  Transmission Date: 20070319
  Serious: Yes (Other)
  Sender: FDA-Public Use
  Company Number: 2006129368

PATIENT
  Age: 41 Year
  Sex: Female
  Weight: 40.8237 kg

DRUGS (5)
  1. ZOLOFT [Suspect]
  2. CHANTIX [Suspect]
     Indication: SMOKING CESSATION THERAPY
     Dosage: 1 MG (0.5 MG, 2 IN 1 D)
     Dates: start: 20060101
  3. VALIUM [Concomitant]
  4. AMBIEN [Concomitant]
  5. COD LIVER OIL/TOCOPHERYL ACETATE (COD-LIVER OIL, TOCOPHERYL ACETATE) [Concomitant]

REACTIONS (3)
  - AMNESIA [None]
  - NERVOUSNESS [None]
  - UNEVALUABLE EVENT [None]
